FAERS Safety Report 6390513-8 (Version None)
Quarter: 2009Q4

REPORT INFORMATION
  Report Type: 
  Country: None (occurrence: None)
  Receive Date: 20091005
  Receipt Date: 20091005
  Transmission Date: 20100525
  Serious: Yes (Hospitalization, Other)
  Sender: FDA-Public Use
  Company Number: None

PATIENT
  Age: 43 Year
  Sex: Female
  Weight: 67.1324 kg

DRUGS (1)
  1. LEVOTHYROXINE SODIUM [Suspect]
     Indication: HYPOTHYROIDISM
     Dosage: 100 MCG DAILY PO
     Route: 048
     Dates: start: 20011121, end: 20090212

REACTIONS (13)
  - BLOOD DISORDER [None]
  - BURNING SENSATION [None]
  - CARDIAC DISORDER [None]
  - HEADACHE [None]
  - HYPOAESTHESIA [None]
  - HYPOVENTILATION [None]
  - LYMPHADENOPATHY [None]
  - MUSCLE DISORDER [None]
  - PARAESTHESIA [None]
  - PERIPHERAL VASCULAR DISORDER [None]
  - SWELLING FACE [None]
  - SWOLLEN TONGUE [None]
  - VOMITING [None]
